FAERS Safety Report 19672537 (Version 3)
Quarter: 2021Q3

REPORT INFORMATION
  Report Type: Spontaneous
  Country: US (occurrence: US)
  Receive Date: 20210808
  Receipt Date: 20210809
  Transmission Date: 20211014
  Serious: Yes (Death)
  Sender: FDA-Public Use
  Company Number: US-ENDO PHARMACEUTICALS INC-2021-002936

PATIENT
  Age: 17 Year
  Sex: Male

DRUGS (2)
  1. RANITIDINE HYDROCHLORIDE. [Suspect]
     Active Substance: RANITIDINE HYDROCHLORIDE
     Indication: GASTRITIS
     Dosage: 150 MG, WEEKLY
     Route: 065
     Dates: start: 200201, end: 202001
  2. RANITIDINE. [Suspect]
     Active Substance: RANITIDINE
     Indication: GASTRITIS
     Dosage: 150 MG, WEEKLY
     Route: 065
     Dates: start: 200201, end: 202001

REACTIONS (3)
  - Hepatic cancer [Fatal]
  - Renal cancer [Fatal]
  - Brain neoplasm [Fatal]

NARRATIVE: CASE EVENT DATE: 20190101
